FAERS Safety Report 12180455 (Version 1)
Quarter: 2016Q1

REPORT INFORMATION
  Report Type: Spontaneous
  Country: US (occurrence: US)
  Receive Date: 20160315
  Receipt Date: 20160315
  Transmission Date: 20160526
  Serious: No
  Sender: FDA-Public Use
  Company Number: US-TEVA-638796USA

PATIENT
  Sex: Female

DRUGS (1)
  1. NUVIGIL [Suspect]
     Active Substance: ARMODAFINIL
     Indication: SLEEP APNOEA SYNDROME
     Route: 065
     Dates: start: 20160211

REACTIONS (4)
  - Drug effect increased [Unknown]
  - Disturbance in attention [Unknown]
  - Intercepted drug prescribing error [Unknown]
  - Insomnia [Unknown]

NARRATIVE: CASE EVENT DATE: 20160211
